FAERS Safety Report 20629527 (Version 2)
Quarter: 2022Q2

REPORT INFORMATION
  Report Type: Spontaneous
  Country: JP (occurrence: JP)
  Receive Date: 20220323
  Receipt Date: 20220405
  Transmission Date: 20220720
  Serious: Yes (Other)
  Sender: FDA-Public Use
  Company Number: JP-TEVA-2022-JP-2018941

PATIENT
  Age: 58 Year
  Sex: Female

DRUGS (1)
  1. PREDNISOLONE [Suspect]
     Active Substance: PREDNISOLONE
     Indication: Sarcoidosis
     Dosage: 8 MILLIGRAM DAILY;
     Route: 065

REACTIONS (2)
  - Mycetoma mycotic [Recovered/Resolved]
  - Aspergillus infection [Recovered/Resolved]
